FAERS Safety Report 6173833-1 (Version None)
Quarter: 2009Q2

REPORT INFORMATION
  Report Type: 
  Country: None (occurrence: None)
  Receive Date: 20090430
  Receipt Date: 20090424
  Transmission Date: 20091009
  Serious: Yes (Hospitalization, Other)
  Sender: FDA-Public Use
  Company Number: JP-ABBOTT-08P-087-0460029-00

PATIENT
  Age: 79 Year
  Sex: Male

DRUGS (12)
  1. LEUPLIN SR FOR INJECTION KIT [Suspect]
     Indication: PROSTATE CANCER STAGE II
     Route: 058
     Dates: start: 20060809
  2. LEUPLIN SR FOR INJECTION KIT [Suspect]
     Route: 058
     Dates: start: 20060512, end: 20060712
  3. BLOPRESS [Concomitant]
     Indication: HYPERTENSION
     Route: 048
  4. CASODEX [Concomitant]
     Indication: PROSTATE CANCER STAGE II
     Route: 048
  5. BAYLOTENSIN [Concomitant]
     Indication: HYPERTENSION
     Route: 048
  6. ASPENON [Concomitant]
     Indication: ARRHYTHMIA
     Route: 048
  7. HALCION [Concomitant]
     Indication: INSOMNIA
     Route: 048
  8. OM POWDER (DIASTASE/NATURAL AGENTS COMBINED DRUG) [Concomitant]
     Indication: GASTRITIS
     Route: 048
  9. PURSENNID [Concomitant]
     Indication: CONSTIPATION
     Route: 048
  10. ADOFEED [Concomitant]
     Indication: BACK PAIN
     Route: 062
     Dates: end: 20070612
  11. LAC B [Concomitant]
     Indication: CONSTIPATION
     Route: 048
  12. CASMOTIN [Concomitant]
     Indication: GASTRITIS
     Route: 048
     Dates: start: 20070904

REACTIONS (4)
  - BENIGN PROSTATIC HYPERPLASIA [None]
  - BLADDER CANCER [None]
  - CYSTITIS [None]
  - GASTRIC CANCER [None]
